FAERS Safety Report 4288782-3 (Version None)
Quarter: 2004Q1

REPORT INFORMATION
  Report Type: 
  Country: None (occurrence: None)
  Receive Date: 20040205
  Receipt Date: 20040129
  Transmission Date: 20041129
  Serious: Yes (Hospitalization)
  Sender: FDA-Public Use
  Company Number: DEU-2004-0000728

PATIENT
  Age: 42 Year
  Sex: Male

DRUGS (1)
  1. OXYGESIC 20 MG (OXYCODONE HYDROCHLORIDE) CR TABLET [Suspect]
     Dosage: SEE IMAGE
     Route: 048
     Dates: end: 20031104

REACTIONS (2)
  - MICTURITION URGENCY [None]
  - PANIC ATTACK [None]
